FAERS Safety Report 8617525-5 (Version None)
Quarter: 2012Q3

REPORT INFORMATION
  Report Type: 
  Country: None (occurrence: None)
  Receive Date: 20120824
  Receipt Date: 20111215
  Transmission Date: 20120928
  Serious: No
  Sender: FDA-Public Use
  Company Number: US-ASTRAZENECA-2011SE67511

PATIENT
  Age: 73 Year
  Sex: Female
  Weight: 57.6 kg

DRUGS (5)
  1. ASPIRIN [Concomitant]
  2. GENERIC NORCO [Concomitant]
  3. SYMBICORT [Suspect]
     Indication: ASTHMA
     Dosage: 160/4.5 MCG, 2 PUFFS BID
     Route: 055
  4. PLUTONICS [Concomitant]
  5. GENERIC PLAVIX [Concomitant]

REACTIONS (2)
  - INCORRECT DOSE ADMINISTERED [None]
  - ASTHMA [None]
